FAERS Safety Report 9409960 (Version 2)
Quarter: 2014Q2

REPORT INFORMATION
  Report Type: Spontaneous
  Country: IT (occurrence: IT)
  Receive Date: 20130719
  Receipt Date: 20140423
  Transmission Date: 20141212
  Serious: Yes (Hospitalization)
  Sender: FDA-Public Use
  Company Number: IT-SANOFI-AVENTIS-2013SA070465

PATIENT
  Age: 26 Year
  Sex: Female

DRUGS (1)
  1. FUROSEMIDE [Suspect]
     Indication: ANOREXIA NERVOSA
     Route: 048
     Dates: start: 20130501, end: 20130603

REACTIONS (6)
  - Syncope [Recovering/Resolving]
  - Drug abuse [Unknown]
  - Hypokalaemia [Recovering/Resolving]
  - Metabolic alkalosis [Recovering/Resolving]
  - Hypovolaemia [Recovering/Resolving]
  - Off label use [Unknown]
